FAERS Safety Report 21603150 (Version 1)
Quarter: 2022Q4

REPORT INFORMATION
  Report Type: Spontaneous
  Country: US (occurrence: US)
  Receive Date: 20221116
  Receipt Date: 20221116
  Transmission Date: 20230112
  Serious: No
  Sender: FDA-Public Use
  Company Number: US-PERRIGO-22US000080

PATIENT
  Age: 76 Year
  Sex: Female
  Weight: 44.444 kg

DRUGS (4)
  1. POLYETHYLENE GLYCOL 3350 [Suspect]
     Active Substance: POLYETHYLENE GLYCOL 3350
     Indication: Irritable bowel syndrome
     Dosage: 17 G, SINGLE
     Route: 048
     Dates: start: 20220103, end: 20220103
  2. PROBIOTICS NOS [Concomitant]
     Active Substance: PROBIOTICS NOS
     Indication: Irritable bowel syndrome
     Dosage: UNK
     Route: 065
     Dates: start: 202109
  3. BENEFIBER FIBER SUPPLEMENT [Concomitant]
     Indication: Irritable bowel syndrome
     Dosage: UNK
     Route: 065
  4. NAPHAZOLINE HYDROCHLORIDE [Concomitant]
     Active Substance: NAPHAZOLINE HYDROCHLORIDE
     Indication: Glaucoma
     Dosage: UNK
     Route: 065
     Dates: start: 2010

REACTIONS (2)
  - Throat irritation [Recovering/Resolving]
  - Off label use [Recovered/Resolved]

NARRATIVE: CASE EVENT DATE: 20220103
